FAERS Safety Report 17607564 (Version 1)
Quarter: 2020Q1

REPORT INFORMATION
  Report Type: Spontaneous
  Country: ES (occurrence: ES)
  Receive Date: 20200331
  Receipt Date: 20200331
  Transmission Date: 20200409
  Serious: Yes (Other)
  Sender: FDA-Public Use
  Company Number: ES-009507513-2003ESP009734

PATIENT
  Age: 75 Year
  Sex: Male

DRUGS (1)
  1. PEMBROLIZUMAB. [Suspect]
     Active Substance: PEMBROLIZUMAB
     Indication: BLADDER CANCER
     Dosage: 200 MILLIGRAM/KILOGRAM, EVERY 3 WEEKS
     Dates: start: 201803

REACTIONS (1)
  - Scleroderma-like reaction [Unknown]

NARRATIVE: CASE EVENT DATE: 201804
